FAERS Safety Report 5739786-2 (Version None)
Quarter: 2008Q2

REPORT INFORMATION
  Report Type: 
  Country: None (occurrence: None)
  Receive Date: 20080512
  Receipt Date: 20080512
  Transmission Date: 20081010
  Serious: Yes (Life-Threatening, Hospitalization)
  Sender: FDA-Public Use
  Company Number: None

PATIENT
  Age: 16 Year
  Sex: Male
  Weight: 63.5036 kg

DRUGS (1)
  1. SOTRET [Suspect]
     Indication: ACNE CYSTIC
     Dosage: 1 TABLET 2 TIMES DAY PO
     Route: 048
     Dates: start: 20071201, end: 20080509

REACTIONS (3)
  - DEPRESSION [None]
  - PARTNER STRESS [None]
  - SUICIDAL IDEATION [None]
